FAERS Safety Report 5564375-2 (Version None)
Quarter: 2007Q4

REPORT INFORMATION
  Report Type: 
  Country: None (occurrence: None)
  Receive Date: 20071218
  Receipt Date: 20071217
  Transmission Date: 20080405
  Serious: Yes (Other)
  Sender: FDA-Public Use
  Company Number: AU-BRISTOL-MYERS SQUIBB COMPANY-14016950

PATIENT
  Age: 66 Year
  Sex: Male
  Weight: 74 kg

DRUGS (2)
  1. PRAVACHOL [Suspect]
     Route: 048
     Dates: start: 20060403, end: 20060426
  2. ASPIRIN [Concomitant]

REACTIONS (1)
  - DEAFNESS [None]
